FAERS Safety Report 8848694 (Version 1)
Quarter: 2012Q4

REPORT INFORMATION
  Report Type: Spontaneous
  Country: IT (occurrence: None)
  Receive Date: 20121015
  Receipt Date: 20121015
  Transmission Date: 20130627
  Serious: Yes (Hospitalization)
  Sender: FDA-Public Use
  Company Number: 2012DEPIT00455

PATIENT
  Age: 28 Year
  Sex: Male

DRUGS (3)
  1. DEPOCYTE (CYTARABINE) LIPOSOME INJECTABLE SUSPENSION, MG [Suspect]
     Indication: PRECURSOR T-LYMPHOBLASTIC LYMPHOMA/LEUKEMIA
     Route: 037
     Dates: start: 20120416, end: 20120416
  2. ATRIANCE [Suspect]
     Indication: PRECURSOR T-LYMPHOBLASTIC LYMPHOMA/LEUKEMIA RECURRENT
     Route: 042
     Dates: start: 20120419, end: 20120423
  3. ATRIANCE [Suspect]
     Indication: PRECURSOR T-LYMPHOBLASTIC LYMPHOMA/LEUKEMIA RECURRENT
     Route: 042
     Dates: start: 20120518, end: 20120522

REACTIONS (4)
  - Ataxia [None]
  - Faecal incontinence [None]
  - Paraesthesia [None]
  - Urinary incontinence [None]
